FAERS Safety Report 8836726 (Version 1)
Quarter: 2012Q4

REPORT INFORMATION
  Report Type: 
  Country: JP (occurrence: JP)
  Receive Date: 20121012
  Receipt Date: 20121012
  Transmission Date: 20130627
  Serious: Yes (Hospitalization, Other)
  Sender: FDA-Public Use
  Company Number: JP-PAR PHARMACEUTICAL, INC-2012SCPR004655

PATIENT

DRUGS (8)
  1. RISPERIDONE [Suspect]
     Indication: BIPOLAR DISORDER
     Dosage: UNK, Unknown
     Route: 065
  2. RISPERIDONE [Interacting]
     Indication: HALLUCINATION, AUDITORY
     Dosage: 5 mg, / day
     Route: 065
  3. RISPERIDONE [Interacting]
     Indication: CONFUSIONAL STATE
     Dosage: 3 mg, / day
     Route: 065
  4. LAMOTRIGINE [Interacting]
     Indication: DEPRESSION
     Dosage: 25 mg, every 2 days
     Route: 065
  5. BIPERIDEN [Concomitant]
     Indication: DEPRESSION
     Dosage: 1 mg, / day
     Route: 065
  6. LITHIUM [Concomitant]
     Indication: BIPOLAR DISORDER
     Dosage: UNK, Unknown
     Route: 065
  7. VALPROATE [Concomitant]
     Indication: BIPOLAR DISORDER
     Dosage: UNK, Unknown
     Route: 065
  8. CARBAMAZEPINE [Concomitant]
     Indication: BIPOLAR DISORDER
     Dosage: UNK, Unknown
     Route: 065

REACTIONS (2)
  - Drug interaction [Unknown]
  - Neuroleptic malignant syndrome [Recovered/Resolved]
